FAERS Safety Report 16680127 (Version 3)
Quarter: 2023Q2

REPORT INFORMATION
  Report Type: Spontaneous
  Country: US (occurrence: US)
  Receive Date: 20190807
  Receipt Date: 20230428
  Transmission Date: 20230722
  Serious: Yes (Disabling)
  Sender: FDA-Public Use
  Company Number: US-TEVA-2019-US-1087278

PATIENT
  Age: 56 Year
  Sex: Female
  Weight: 68.946 kg

DRUGS (15)
  1. DOCETAXEL [Suspect]
     Active Substance: DOCETAXEL
     Indication: Invasive ductal breast carcinoma
     Dosage: TOTAL 6 CYCLES, EVERY THREE WEEKS
     Route: 065
     Dates: start: 20140630, end: 20141013
  2. DOCETAXEL [Suspect]
     Active Substance: DOCETAXEL
     Dosage: TOTAL 6 CYCLES, EVERY THREE WEEKS
     Route: 065
     Dates: start: 20140630, end: 20141013
  3. CARBOPLATIN [Suspect]
     Active Substance: CARBOPLATIN
     Indication: Invasive ductal breast carcinoma
     Dosage: 620 MG, TOTAL 6 CYCLES, EVERY THREE WEEKS
     Route: 042
     Dates: start: 20140630, end: 20141013
  4. DOCETAXEL [Suspect]
     Active Substance: DOCETAXEL
     Indication: Invasive ductal breast carcinoma
     Dosage: DOSAGE: 120MG, TOTAL 6 CYCLES, EVERY THREE WEEKS
     Route: 065
     Dates: start: 20140630, end: 20141013
  5. DOCETAXEL [Suspect]
     Active Substance: DOCETAXEL
     Indication: Invasive ductal breast carcinoma
     Dosage: DOSAGE: 120MG, TOTAL 6 CYCLES, EVERY THREE WEEKS
     Route: 065
     Dates: start: 20140630, end: 20141013
  6. PERJETA [Suspect]
     Active Substance: PERTUZUMAB
     Indication: Invasive ductal breast carcinoma
     Dosage: DOSAGE: 420MG, TOTAL 6 CYCLES, EVERY THREE WEEKS
     Route: 042
     Dates: start: 20140630, end: 20141013
  7. HERCEPTIN [Suspect]
     Active Substance: TRASTUZUMAB
     Indication: Invasive ductal breast carcinoma
     Dosage: DOSAGE: 119MG (AT 2.0887 MG/KG), EVERY THREE WEEKS
     Route: 042
     Dates: start: 20140630
  8. ALOXI [Concomitant]
     Active Substance: PALONOSETRON HYDROCHLORIDE
     Indication: Product used for unknown indication
     Dosage: 0.25 MG (OF 0.25 MG/5ML)
     Route: 042
     Dates: start: 20140630
  9. CITALOPRAM HYDROBROMIDE [Concomitant]
     Active Substance: CITALOPRAM HYDROBROMIDE
     Indication: Product used for unknown indication
     Dosage: 0.25 MG (OF 0.25 MG/5ML)
     Route: 042
     Dates: start: 20140630
  10. DEXAMETHASONE [Concomitant]
     Active Substance: DEXAMETHASONE
     Indication: Product used for unknown indication
     Dosage: 4MG AS DIRECTED
     Route: 048
     Dates: start: 20140630
  11. DEXAMETHASONE SODIUM PHOSPHATE [Concomitant]
     Active Substance: DEXAMETHASONE SODIUM PHOSPHATE
     Indication: Product used for unknown indication
     Dosage: 10 MG INTRAVENOUS ONCE
     Route: 042
     Dates: start: 20140630
  12. FOSAPREPITANT DIMEGLUMINE [Concomitant]
     Active Substance: FOSAPREPITANT DIMEGLUMINE
     Indication: Product used for unknown indication
     Dosage: 150 MG
     Route: 042
     Dates: start: 20140630
  13. GRANISETRON HYDROCHLORIDE [Concomitant]
     Active Substance: GRANISETRON HYDROCHLORIDE
     Indication: Product used for unknown indication
     Dosage: 1 MG INTRAVENOUS ONCE
     Route: 042
     Dates: start: 20140629
  14. PEGFILGRASTIM [Concomitant]
     Active Substance: PEGFILGRASTIM
     Indication: Product used for unknown indication
     Dosage: 6 MG (OF 6 MG/0.6ML)
     Route: 058
     Dates: start: 20140701
  15. PROCHLORPERAZINE MALEATE [Concomitant]
     Active Substance: PROCHLORPERAZINE MALEATE
     Indication: Product used for unknown indication
     Dosage: 1 (10 MG) TABLET ORAL Q 6 HOURS PRN
     Route: 048
     Dates: start: 20140630

REACTIONS (4)
  - Alopecia areata [Not Recovered/Not Resolved]
  - Madarosis [Not Recovered/Not Resolved]
  - Hair texture abnormal [Not Recovered/Not Resolved]
  - Hair colour changes [Not Recovered/Not Resolved]

NARRATIVE: CASE EVENT DATE: 20140901
